FAERS Safety Report 8485525-4 (Version None)
Quarter: 2012Q3

REPORT INFORMATION
  Report Type: 
  Country: None (occurrence: None)
  Receive Date: 20120703
  Receipt Date: 20120625
  Transmission Date: 20120928
  Serious: Yes (Other)
  Sender: FDA-Public Use
  Company Number: US-ROCHE-784650

PATIENT
  Sex: Female
  Weight: 63.56 kg

DRUGS (3)
  1. ORTHO TRI-CYCLEN [Concomitant]
  2. ASACOL [Concomitant]
  3. ACCUTANE [Suspect]
     Indication: PRODUCT USED FOR UNKNOWN INDICATION
     Route: 065
     Dates: start: 19990910, end: 20000201

REACTIONS (8)
  - INFLAMMATORY BOWEL DISEASE [None]
  - STRESS [None]
  - DEPRESSION [None]
  - COLITIS ULCERATIVE [None]
  - PROCTITIS ULCERATIVE [None]
  - COLONIC POLYP [None]
  - CROHN'S DISEASE [None]
  - IRRITABLE BOWEL SYNDROME [None]
